FAERS Safety Report 24136186 (Version 1)
Quarter: 2024Q3

REPORT INFORMATION
  Report Type: Spontaneous
  Country: US (occurrence: US)
  Receive Date: 20240725
  Receipt Date: 20240725
  Transmission Date: 20241017
  Serious: Yes (Congenital Anomaly)
  Sender: HETERO
  Company Number: US-HETERO-HET2024US02373

PATIENT
  Sex: Female

DRUGS (4)
  1. DOLUTEGRAVIR\LAMIVUDINE\TENOFOVIR DISOPROXIL FUMARATE [Suspect]
     Active Substance: DOLUTEGRAVIR\LAMIVUDINE\TENOFOVIR DISOPROXIL FUMARATE
     Indication: Product used for unknown indication
     Dosage: 1 DOSAGE FORM, 1 COURSE ONCE DAILY
     Route: 064
     Dates: end: 20240227
  2. BICTEGRAVIR\EMTRICITABINE\TENOFOVIR ALAFENAMIDE [Suspect]
     Active Substance: BICTEGRAVIR\EMTRICITABINE\TENOFOVIR ALAFENAMIDE
     Indication: Product used for unknown indication
     Dosage: 1 DOSAGE FORM, 1 COURSE ONCE DAILY
     Route: 064
     Dates: start: 20240227
  3. RETROVIR [Suspect]
     Active Substance: ZIDOVUDINE
     Indication: Product used for unknown indication
     Dosage: 2 DOSAGE FORM, 1 COURSE MILLIGRAM PER KILOGRAM PER HOUR, ONCE DAILY
     Route: 064
     Dates: start: 20240330, end: 20240330
  4. RETROVIR [Suspect]
     Active Substance: ZIDOVUDINE
     Dosage: 1 DOSAGE FORM, 2 COURSE MILLIGRAM PER KILOGRAM PER HOUR, ONCE DAILY
     Route: 064
     Dates: start: 20240330, end: 20240331

REACTIONS (2)
  - Septum pellucidum agenesis [Unknown]
  - Foetal exposure during pregnancy [Unknown]
